FAERS Safety Report 9227041 (Version 1)
Quarter: 2013Q1

REPORT INFORMATION
  Report Type: Spontaneous
  Country: US (occurrence: None)
  Receive Date: 20120927
  Receipt Date: 20120927
  Transmission Date: 20140127
  Serious: Yes (Hospitalization)
  Sender: FDA-Public Use
  Company Number: 2012-01142

PATIENT
  Age: 71 Year
  Sex: Female

DRUGS (8)
  1. VALPROIC ACID [Suspect]
     Indication: PRODUCT USED FOR UNKNOWN INDICATION
     Dosage: 20 MG/KG (LOADING DOSE) (1100 MG), UNKNOWN?
  2. WARFARIN (UNKNOWN) [Suspect]
     Indication: PRODUCT USED FOR UNKNOWN INDICATION
     Dosage: 2.5 MG (2.5 MG MONDAY, TUESDAY, WEDNESDAY, THURSDAY, FRIDAY), ORAL
     Route: 048
  3. LEVETIRACETAM (UNKNOWN) [Concomitant]
  4. MIDAZOLAM (UNKNOWN) [Concomitant]
  5. DEXAMETHASONE (UNKNOWN) [Concomitant]
  6. PRAVASTATIN (UNKNOWN) [Concomitant]
  7. FISH OIL (CAPSULES) [Concomitant]
  8. TEMOZOLOMIDE (UNKNOWN) [Concomitant]

REACTIONS (2)
  - Drug interaction [None]
  - International normalised ratio increased [None]
